FAERS Safety Report 11592604 (Version 1)
Quarter: 2015Q4

REPORT INFORMATION
  Report Type: Spontaneous
  Country: GB (occurrence: GB)
  Receive Date: 20151005
  Receipt Date: 20151005
  Transmission Date: 20160304
  Serious: Yes (Hospitalization, Other)
  Sender: FDA-Public Use
  Company Number: GB-WATSON-2015-20933

PATIENT
  Age: 49 Year
  Sex: Male
  Weight: 108.86 kg

DRUGS (4)
  1. AMLODIPINE [Concomitant]
     Active Substance: AMLODIPINE BESYLATE
     Indication: PRODUCT USED FOR UNKNOWN INDICATION
     Dosage: UNK
     Route: 065
  2. LOSARTAN. [Concomitant]
     Active Substance: LOSARTAN
     Indication: PRODUCT USED FOR UNKNOWN INDICATION
     Dosage: UNK
     Route: 065
  3. SERTRALINE [Concomitant]
     Active Substance: SERTRALINE HYDROCHLORIDE
     Indication: PRODUCT USED FOR UNKNOWN INDICATION
     Dosage: UNK
     Route: 065
  4. INDOMETACIN (UNKNOWN) [Suspect]
     Active Substance: INDOMETHACIN
     Indication: GOUT
     Dosage: 25 MG, UNK
     Route: 048
     Dates: start: 20150914

REACTIONS (10)
  - Palpitations [Recovering/Resolving]
  - Panic reaction [Recovering/Resolving]
  - Presyncope [Recovering/Resolving]
  - Dry mouth [Recovering/Resolving]
  - Feeling abnormal [Unknown]
  - Sudden onset of sleep [Recovering/Resolving]
  - Altered state of consciousness [Recovering/Resolving]
  - Anxiety [Recovering/Resolving]
  - Feeling drunk [Unknown]
  - Restlessness [Recovering/Resolving]

NARRATIVE: CASE EVENT DATE: 20150914
